FAERS Safety Report 6928793-X (Version None)
Quarter: 2010Q3

REPORT INFORMATION
  Report Type: 
  Country: None (occurrence: None)
  Receive Date: 20100817
  Receipt Date: 20100804
  Transmission Date: 20110219
  Serious: Yes (Hospitalization)
  Sender: FDA-Public Use
  Company Number: JP-ABBOTT-09P-087-0588257-00

PATIENT
  Sex: Female
  Weight: 48 kg

DRUGS (16)
  1. HUMIRA [Suspect]
     Indication: RHEUMATOID ARTHRITIS
     Route: 058
     Dates: start: 20090501, end: 20090626
  2. FAMOTIDINE [Concomitant]
     Indication: PROPHYLAXIS
     Dates: start: 20030101, end: 20090729
  3. FAMOTIDINE [Concomitant]
     Indication: ADVERSE DRUG REACTION
  4. PREDNISOLONE [Concomitant]
     Indication: PRODUCT USED FOR UNKNOWN INDICATION
     Dates: start: 20030511
  5. AROTINOLOL HYDROCHLORIDE [Concomitant]
     Indication: HYPERTENSION
     Dates: start: 20080515
  6. LOXOPROFEN SODIUM HYDRATE [Concomitant]
     Indication: RHEUMATOID ARTHRITIS
     Route: 048
     Dates: start: 20030101
  7. PRAVASTATIN SODIUM [Concomitant]
     Indication: HYPERLIPIDAEMIA
     Route: 048
     Dates: start: 20070421
  8. VITAMIN B COMPLEX CAP [Concomitant]
     Indication: PROPHYLAXIS
     Route: 048
  9. VITAMIN B COMPLEX CAP [Concomitant]
     Indication: GLOSSITIS
  10. VITAMIN B COMPLEX CAP [Concomitant]
  11. VITAMIN B COMPLEX CAP [Concomitant]
     Indication: ADVERSE DRUG REACTION
  12. METHOTREXATE [Concomitant]
     Indication: RHEUMATOID ARTHRITIS
     Route: 048
     Dates: start: 20030101
  13. FOLIC ACID [Concomitant]
     Indication: ADVERSE DRUG REACTION
     Route: 048
     Dates: start: 20030101
  14. FOLIC ACID [Concomitant]
     Indication: PROPHYLAXIS
  15. ALENDRONATE SODIUM [Concomitant]
     Indication: OSTEOPOROSIS
     Route: 048
     Dates: start: 20061104
  16. DICLOFENAC SODIUM [Concomitant]
     Indication: RHEUMATOID ARTHRITIS

REACTIONS (3)
  - ARTHRALGIA [None]
  - MYALGIA [None]
  - PYREXIA [None]
